FAERS Safety Report 20097341 (Version 2)
Quarter: 2021Q4

REPORT INFORMATION
  Report Type: Spontaneous
  Country: PL (occurrence: PL)
  Receive Date: 20211122
  Receipt Date: 20211216
  Transmission Date: 20220303
  Serious: Yes (Other)
  Sender: FDA-Public Use
  Company Number: PL-MYLANLABS-2021M1057320

PATIENT
  Age: 73 Year
  Sex: Female

DRUGS (13)
  1. DULOXETINE [Suspect]
     Active Substance: DULOXETINE
     Indication: Neuralgia
     Dosage: 60 MILLIGRAM, AM
  2. DULOXETINE [Suspect]
     Active Substance: DULOXETINE
     Dosage: 60 MILLIGRAM, QD
  3. PREGABALIN [Suspect]
     Active Substance: PREGABALIN
     Indication: Neuralgia
     Dosage: 300 MILLIGRAM, QD (IN 2 DOSES)
  4. GABAPENTIN [Interacting]
     Active Substance: GABAPENTIN
     Indication: Neuralgia
     Dosage: 600 MILLIGRAM IN THREE DIVIDED DOSES
  5. GABAPENTIN [Interacting]
     Active Substance: GABAPENTIN
     Dosage: 200 MILLIGRAM, QD
     Route: 065
  6. HYDROXYZINE [Interacting]
     Active Substance: HYDROXYZINE HYDROCHLORIDE
     Indication: Neuralgia
     Dosage: 10 MILLIGRAM, QD, BEFORE BEDTIME
     Route: 065
  7. MORPHINE [Suspect]
     Active Substance: MORPHINE
     Indication: Neuralgia
     Dosage: 60 MILLIGRAM IN TWO DIVIDED DOSES,~30 MG, BID
     Route: 065
  8. MORPHINE [Suspect]
     Active Substance: MORPHINE
     Dosage: 60 MILLIGRAM, QD
     Route: 065
  9. TAPENTADOL [Suspect]
     Active Substance: TAPENTADOL
     Indication: Neuralgia
     Dosage: 200 MILLIGRAM (2 DIVIDED DOSES)
  10. TAPENTADOL [Suspect]
     Active Substance: TAPENTADOL
     Dosage: 200 MILLIGRAM
  11. CITALOPRAM [Interacting]
     Active Substance: CITALOPRAM HYDROBROMIDE
     Indication: Neuralgia
     Dosage: 20 MILLIGRAM, QD  (IN THE MORNING)
  12. TRAZODONE [Concomitant]
     Active Substance: TRAZODONE HYDROCHLORIDE
     Indication: Sleep disorder
     Dosage: 25 MILLIGRAM, HS 2 HOURS BEFORE BEDTIME
  13. CAPSAICIN [Concomitant]
     Active Substance: CAPSAICIN
     Indication: Pain
     Dosage: 3 PATCHES WERE USED, APPLICATION TIME 30 MINUTES
     Route: 065

REACTIONS (7)
  - Delirium [Unknown]
  - Drug interaction [Recovering/Resolving]
  - Therapeutic product effect incomplete [Unknown]
  - Confusional state [Unknown]
  - Constipation [Unknown]
  - Drug ineffective [Recovered/Resolved]
  - Product selection error [Unknown]
